FAERS Safety Report 17157866 (Version 1)
Quarter: 2019Q4

REPORT INFORMATION
  Report Type: Spontaneous
  Country: US (occurrence: US)
  Receive Date: 20191216
  Receipt Date: 20191216
  Transmission Date: 20200122
  Serious: Yes (Death, Other)
  Sender: FDA-Public Use
  Company Number: US-009507513-1912USA006691

PATIENT
  Age: 14 Year
  Sex: Female

DRUGS (6)
  1. COLCHICINE. [Suspect]
     Active Substance: COLCHICINE
     Route: 048
  2. MELOXICAM. [Suspect]
     Active Substance: MELOXICAM
     Route: 048
  3. PRINIVIL [Suspect]
     Active Substance: LISINOPRIL
     Route: 048
  4. TIZANIDINE HYDROCHLORIDE. [Suspect]
     Active Substance: TIZANIDINE HYDROCHLORIDE
     Route: 048
  5. IRON (UNSPECIFIED) [Suspect]
     Active Substance: IRON
     Route: 048
  6. CIPROFLOXACIN. [Suspect]
     Active Substance: CIPROFLOXACIN
     Route: 048

REACTIONS (1)
  - Suspected suicide [Fatal]
